FAERS Safety Report 7829007-9 (Version None)
Quarter: 2011Q4

REPORT INFORMATION
  Report Type: 
  Country: None (occurrence: None)
  Receive Date: 20111020
  Receipt Date: 20111011
  Transmission Date: 20120403
  Serious: Yes (Hospitalization, Other)
  Sender: FDA-Public Use
  Company Number: US-ELI_LILLY_AND_COMPANY-US201106007575

PATIENT
  Sex: Female
  Weight: 118.82 kg

DRUGS (8)
  1. VYTORIN [Concomitant]
     Indication: HYPERLIPIDAEMIA
     Dosage: UNK
     Dates: start: 20060123
  2. ACTOS [Concomitant]
     Dosage: 35 MG, UNK
  3. NASACORT [Concomitant]
     Indication: HYPERSENSITIVITY
     Dosage: 55 UG/M2, UNK
     Dates: start: 20040430, end: 20090303
  4. LORTAB [Concomitant]
     Indication: PAIN
     Dosage: UNK
     Dates: start: 20060607
  5. BYETTA [Suspect]
     Dosage: 10 UG, BID
     Route: 058
     Dates: start: 20060426, end: 20090309
  6. ACTOS [Concomitant]
     Indication: TYPE 2 DIABETES MELLITUS
     Dosage: 45 MG, UNK
     Route: 048
     Dates: start: 20040912
  7. ZYRTEC [Concomitant]
     Indication: HYPERSENSITIVITY
     Dosage: 10 MG, UNK
     Dates: start: 20060123, end: 20080623
  8. BYETTA [Suspect]
     Indication: TYPE 2 DIABETES MELLITUS
     Dosage: 5 UG, BID
     Route: 058
     Dates: start: 20060308, end: 20060426

REACTIONS (5)
  - HAEMORRHAGIC STROKE [None]
  - WEIGHT INCREASED [None]
  - APHASIA [None]
  - MEMORY IMPAIRMENT [None]
  - CONVULSION [None]
